FAERS Safety Report 16874800 (Version 3)
Quarter: 2019Q4

REPORT INFORMATION
  Report Type: Spontaneous
  Country: US (occurrence: US)
  Receive Date: 20191001
  Receipt Date: 20191202
  Transmission Date: 20200122
  Serious: No
  Sender: FDA-Public Use
  Company Number: US-ACTELION-A-NJ2019-196312

PATIENT
  Sex: Female
  Weight: 130.16 kg

DRUGS (3)
  1. UPTRAVI [Suspect]
     Active Substance: SELEXIPAG
     Indication: PULMONARY ARTERIAL HYPERTENSION
     Dosage: 200 MCG, BID
     Route: 048
     Dates: end: 20190920
  2. SILDENAFIL CITRATE. [Concomitant]
     Active Substance: SILDENAFIL CITRATE
  3. OPSUMIT [Suspect]
     Active Substance: MACITENTAN
     Indication: PULMONARY ARTERIAL HYPERTENSION
     Route: 048

REACTIONS (15)
  - Heart rate increased [Unknown]
  - Drug hypersensitivity [Unknown]
  - Feeling abnormal [Unknown]
  - Somnolence [Unknown]
  - Fatigue [Unknown]
  - Dyspnoea [Unknown]
  - Disturbance in attention [Unknown]
  - Rehabilitation therapy [Unknown]
  - Sinusitis [Unknown]
  - Abdominal pain [Unknown]
  - Diarrhoea [Unknown]
  - Haemorrhoids [Unknown]
  - Product dose omission [Unknown]
  - Gait disturbance [Unknown]
  - Disorientation [Unknown]
